FAERS Safety Report 5737687-7 (Version None)
Quarter: 2008Q2

REPORT INFORMATION
  Report Type: 
  Country: None (occurrence: None)
  Receive Date: 20080514
  Receipt Date: 20080502
  Transmission Date: 20081010
  Serious: Yes (Other)
  Sender: FDA-Public Use
  Company Number: GB-BAYER-GB-2007-007006

PATIENT
  Age: 49 Year
  Sex: Female

DRUGS (8)
  1. FLUDARA [Suspect]
     Indication: CHRONIC LYMPHOCYTIC LEUKAEMIA
     Route: 048
  2. CYCLOPHOSPHAMIDE [Suspect]
     Indication: CHEMOTHERAPY
  3. RITUXIMAB [Suspect]
  4. CHLORAMBUCIL [Suspect]
     Indication: CHEMOTHERAPY
  5. DOXORUBICIN HCL [Suspect]
     Indication: CHEMOTHERAPY
  6. PREDNISONE TAB [Suspect]
     Indication: CHEMOTHERAPY
  7. VINCRISTINE [Suspect]
  8. VINCRISTINE [Concomitant]
     Indication: CHEMOTHERAPY MULTIPLE AGENTS SYSTEMIC

REACTIONS (1)
  - AUTOIMMUNE NEUTROPENIA [None]
